FAERS Safety Report 20568666 (Version 3)
Quarter: 2022Q3

REPORT INFORMATION
  Report Type: Spontaneous
  Country: US (occurrence: US)
  Receive Date: 20220308
  Receipt Date: 20220823
  Transmission Date: 20221027
  Serious: Yes (Hospitalization, Other)
  Sender: FDA-Public Use
  Company Number: US-PFIZER INC-2021099464

PATIENT
  Age: 63 Year
  Sex: Male
  Weight: 86.18 kg

DRUGS (5)
  1. RETACRIT [Suspect]
     Active Substance: EPOETIN ALFA-EPBX
     Indication: Nephrogenic anaemia
     Dosage: 1 ML (EVERY 14 DAYS)
     Route: 058
  2. RETACRIT [Suspect]
     Active Substance: EPOETIN ALFA-EPBX
     Indication: Blood iron decreased
     Dosage: 1 ML (40,000 UNIT NOT PROVIDED), EVERY 14 DAYS
     Route: 058
  3. RETACRIT [Suspect]
     Active Substance: EPOETIN ALFA-EPBX
     Indication: Diabetes mellitus
     Dosage: INJECT 0.75 ML (30,000 UNITS) INTO SKIN EVERY FOURTEEN DAYS
     Route: 058
  4. RETACRIT [Suspect]
     Active Substance: EPOETIN ALFA-EPBX
     Dosage: 1ML (40,000 UNITS), EVERY 14 DAYS
     Route: 058
  5. DEPAKOTE [Concomitant]
     Active Substance: DIVALPROEX SODIUM
     Indication: Epilepsy
     Dosage: UNK

REACTIONS (2)
  - Off label use [Unknown]
  - Full blood count decreased [Unknown]

NARRATIVE: CASE EVENT DATE: 20220201
